FAERS Safety Report 5513016-9 (Version None)
Quarter: 2007Q4

REPORT INFORMATION
  Report Type: 
  Country: None (occurrence: None)
  Receive Date: 20071108
  Receipt Date: 20071023
  Transmission Date: 20080405
  Serious: Yes (Other)
  Sender: FDA-Public Use
  Company Number: B0493682A

PATIENT
  Age: 11 Year
  Sex: Male

DRUGS (13)
  1. BUSULPHAN (FORMULATION UNKNOWN) (GENERIC) (BUSULFAN) [Suspect]
     Indication: STEM CELL TRANSPLANT
     Dosage: ORAL
     Route: 048
  2. FLUDARABINE PHOSPHATE [Suspect]
     Indication: STEM CELL TRANSPLANT
     Dosage: INTRAVENOUS
     Route: 042
  3. CYCLOPHOSPHAMIDE [Suspect]
     Indication: STEM CELL TRANSPLANT
  4. RABBIT ANTITHYMOCYTE IMMU (FORMULATION UNKNOWN) (RABBIT ANTITHYMOCYTE [Suspect]
     Indication: STEM CELL TRANSPLANT
  5. MESNA [Suspect]
     Indication: STEM CELL TRANSPLANT
     Dosage: INTRAVENOUS
     Route: 042
  6. CYCLOSPORINE [Suspect]
     Indication: PROPHYLAXIS AGAINST TRANSPLANT REJECTION
  7. METHYLPREDNISOLONE [Suspect]
     Indication: PROPHYLAXIS AGAINST TRANSPLANT REJECTION
     Dosage: INTRAVENOUS
     Route: 042
  8. GANCICLOVIR [Suspect]
     Indication: CYTOMEGALOVIRUS INFECTION
  9. TACROLIMUS (FORMULATION UNKNOWN) (TACROLIMUS) [Suspect]
     Indication: PROPHYLAXIS AGAINST TRANSPLANT REJECTION
  10. MYCOPHENOLATE MOFETIL (FORMULATION UNKNOWN) (MYCOPHENOLATE MOFETIL) [Suspect]
     Indication: GRAFT VERSUS HOST DISEASE
  11. AMLODIPINE [Suspect]
     Indication: HYPERTENSION
  12. CAPTOPRIL [Suspect]
     Indication: HYPERTENSION
  13. OXYGEN (FORMULATION UNKNOWN) (OXYGEN) [Suspect]
     Indication: CYSTITIS HAEMORRHAGIC

REACTIONS (10)
  - BLOOD PRODUCT TRANSFUSION DEPENDENT [None]
  - CONFUSIONAL STATE [None]
  - CYSTITIS HAEMORRHAGIC [None]
  - CYTOMEGALOVIRUS INFECTION [None]
  - DRUG TOXICITY [None]
  - GENERALISED OEDEMA [None]
  - GRAFT VERSUS HOST DISEASE [None]
  - HAEMORRHAGE INTRACRANIAL [None]
  - HALLUCINATION [None]
  - HYPERTENSION [None]
